FAERS Safety Report 7832237-3 (Version None)
Quarter: 2011Q4

REPORT INFORMATION
  Report Type: 
  Country: None (occurrence: None)
  Receive Date: 20111022
  Receipt Date: 20111006
  Transmission Date: 20120403
  Serious: Yes (Hospitalization)
  Sender: FDA-Public Use
  Company Number: US-BAYER-2011-023320

PATIENT
  Age: 19 Year
  Sex: Female
  Weight: 63 kg

DRUGS (2)
  1. PROVENTIL [Concomitant]
  2. YASMIN [Suspect]
     Indication: PRODUCT USED FOR UNKNOWN INDICATION
     Dosage: UNK
     Route: 048
     Dates: start: 20070501, end: 20080314

REACTIONS (6)
  - PULMONARY EMBOLISM [None]
  - MENTAL DISORDER [None]
  - PAIN [None]
  - ANXIETY [None]
  - EMOTIONAL DISTRESS [None]
  - INJURY [None]
